FAERS Safety Report 7012228-5 (Version None)
Quarter: 2010Q3

REPORT INFORMATION
  Report Type: 
  Country: None (occurrence: None)
  Receive Date: 20100924
  Receipt Date: 20100913
  Transmission Date: 20110219
  Serious: Yes (Death)
  Sender: FDA-Public Use
  Company Number: GB-JNJFOC-20100904583

PATIENT
  Age: 81 Year
  Sex: Female
  Weight: 49 kg

DRUGS (1)
  1. INFLIXIMAB, RECOMBINANT [Suspect]
     Indication: RHEUMATOID ARTHRITIS

REACTIONS (3)
  - PERIPHERAL ISCHAEMIA [None]
  - RHEUMATOID ARTHRITIS [None]
  - SUBCLAVIAN ARTERY THROMBOSIS [None]
